FAERS Safety Report 7994944-1 (Version None)
Quarter: 2011Q4

REPORT INFORMATION
  Report Type: 
  Country: None (occurrence: None)
  Receive Date: 20111220
  Receipt Date: 20111217
  Transmission Date: 20120403
  Serious: Yes (Other)
  Sender: FDA-Public Use
  Company Number: BR-ROCHE-1023036

PATIENT
  Sex: Male

DRUGS (1)
  1. TORADOL [Suspect]
     Indication: BACK PAIN
     Route: 042

REACTIONS (2)
  - DIPLOPIA [None]
  - RESPIRATORY FAILURE [None]
